FAERS Safety Report 5710196-7 (Version None)
Quarter: 2008Q2

REPORT INFORMATION
  Report Type: 
  Country: None (occurrence: None)
  Receive Date: 20080418
  Receipt Date: 20080408
  Transmission Date: 20081010
  Serious: Yes (Other)
  Sender: FDA-Public Use
  Company Number: US-PFIZER INC-2008010260

PATIENT
  Sex: Female
  Weight: 49.9 kg

DRUGS (4)
  1. CHANTIX [Suspect]
     Indication: SMOKING CESSATION THERAPY
     Route: 048
     Dates: start: 20080114, end: 20080303
  2. CHANTIX [Suspect]
     Indication: NICOTINE DEPENDENCE
  3. CYMBALTA [Concomitant]
  4. CLONAZEPAM [Concomitant]

REACTIONS (12)
  - ABDOMINAL DISTENSION [None]
  - ABDOMINAL PAIN [None]
  - ANGER [None]
  - ASTHENIA [None]
  - DEPRESSION [None]
  - FATIGUE [None]
  - FEELING ABNORMAL [None]
  - FLATULENCE [None]
  - HOMICIDAL IDEATION [None]
  - MALAISE [None]
  - NERVOUSNESS [None]
  - SKIN DISCOLOURATION [None]
